FAERS Safety Report 4535166-6 (Version None)
Quarter: 2004Q4

REPORT INFORMATION
  Report Type: 
  Country: None (occurrence: None)
  Receive Date: 20041222
  Receipt Date: 20040317
  Transmission Date: 20050328
  Serious: No
  Sender: FDA-Public Use
  Company Number: US-BRISTOL-MYERS SQUIBB COMPANY-12541470

PATIENT
  Sex: Female

DRUGS (1)
  1. DOVONEX [Suspect]
     Indication: ECZEMA

REACTIONS (1)
  - DRUG INEFFECTIVE [None]
